FAERS Safety Report 4442402-3 (Version None)
Quarter: 2004Q3

REPORT INFORMATION
  Report Type: 
  Country: None (occurrence: None)
  Receive Date: 20040903
  Receipt Date: 20040802
  Transmission Date: 20050211
  Serious: Yes (Other)
  Sender: FDA-Public Use
  Company Number: 2004UW16305

PATIENT
  Age: 51 Year
  Sex: Female
  Weight: 62.5964 kg

DRUGS (5)
  1. CRESTOR [Suspect]
     Indication: BLOOD CHOLESTEROL INCREASED
     Dosage: 10 MG PO
     Route: 048
  2. SYNTHROID [Concomitant]
  3. ADDERALL 10 [Concomitant]
  4. TRAZODONE [Concomitant]
  5. ZETIA [Concomitant]

REACTIONS (4)
  - ARTHRITIS [None]
  - OEDEMA PERIPHERAL [None]
  - SWELLING [None]
  - WEIGHT INCREASED [None]
